FAERS Safety Report 16833212 (Version 2)
Quarter: 2019Q4

REPORT INFORMATION
  Report Type: Spontaneous
  Country: NL (occurrence: NL)
  Receive Date: 20190920
  Receipt Date: 20191017
  Transmission Date: 20200122
  Serious: Yes (Other)
  Sender: FDA-Public Use
  Company Number: NL-ACTELION-A-CH2019-195554

PATIENT
  Sex: Female

DRUGS (3)
  1. ADCIRCA [Concomitant]
     Active Substance: TADALAFIL
     Dosage: 20 MG, QD
  2. OPSUMIT [Suspect]
     Active Substance: MACITENTAN
     Indication: SYSTEMIC SCLERODERMA
     Dosage: 10 MG, QD
     Route: 048
  3. VOLIBRIS [Concomitant]
     Active Substance: AMBRISENTAN
     Dosage: 5 MG, QD

REACTIONS (3)
  - Biopsy lung [Unknown]
  - Metastasis [Unknown]
  - Lung neoplasm malignant [Unknown]
